FAERS Safety Report 20897165 (Version 1)
Quarter: 2022Q2

REPORT INFORMATION
  Report Type: Spontaneous
  Country: US (occurrence: US)
  Receive Date: 20220531
  Receipt Date: 20220531
  Transmission Date: 20220721
  Serious: Yes (Other)
  Sender: FDA-Public Use
  Company Number: US-PFIZER INC-202200771062

PATIENT
  Age: 68 Year
  Sex: Female

DRUGS (2)
  1. XELJANZ XR [Suspect]
     Active Substance: TOFACITINIB CITRATE
     Dosage: 11 MG
     Dates: start: 202205
  2. PREDNISONE [Concomitant]
     Active Substance: PREDNISONE

REACTIONS (11)
  - Osteogenesis imperfecta [Unknown]
  - Influenza like illness [Unknown]
  - Pyrexia [Unknown]
  - Hypersomnia [Recovering/Resolving]
  - Insomnia [Unknown]
  - Headache [Unknown]
  - Musculoskeletal discomfort [Unknown]
  - Back pain [Unknown]
  - Pruritus [Unknown]
  - Fatigue [Unknown]
  - Osteoporosis [Unknown]
